FAERS Safety Report 19494069 (Version 4)
Quarter: 2021Q3

REPORT INFORMATION
  Report Type: Spontaneous
  Country: FR (occurrence: FR)
  Receive Date: 20210706
  Receipt Date: 20210730
  Transmission Date: 20211014
  Serious: Yes (Death, Hospitalization, Other)
  Sender: FDA-Public Use
  Company Number: FR-AUROBINDO-AUR-APL-2021-028336

PATIENT
  Age: 89 Year
  Sex: Male
  Weight: 82 kg

DRUGS (10)
  1. WARFARIN [Interacting]
     Active Substance: WARFARIN
     Indication: CARDIAC VALVE DISEASE
     Dosage: 5 MILLIGRAM, ONCE A DAY
     Route: 065
  2. BISOPROLOL [Concomitant]
     Active Substance: BISOPROLOL
     Indication: CARDIAC VALVE DISEASE
     Dosage: UNK
     Route: 065
  3. FUROSEMIDE. [Concomitant]
     Active Substance: FUROSEMIDE
     Indication: CARDIAC VALVE DISEASE
     Dosage: UNK
     Route: 065
  4. DEXAMETHASONE. [Concomitant]
     Active Substance: DEXAMETHASONE
     Indication: COVID-19 PNEUMONIA
     Dosage: 6 MILLIGRAM, ONCE A DAY
     Route: 065
  5. AMOXICILLIN. [Concomitant]
     Active Substance: AMOXICILLIN
     Indication: COVID-19
     Dosage: UNK
     Route: 065
  6. AZITHROMYCIN ANHYDROUS. [Suspect]
     Active Substance: AZITHROMYCIN ANHYDROUS
     Indication: COVID-19
     Dosage: UNK
     Route: 065
  7. WARFARIN [Interacting]
     Active Substance: WARFARIN
     Indication: ATRIAL FIBRILLATION
  8. CEFOTAXIME [Concomitant]
     Active Substance: CEFOTAXIME SODIUM
     Indication: COVID-19
     Dosage: UNK
     Route: 065
  9. RAMIPRIL. [Concomitant]
     Active Substance: RAMIPRIL
     Indication: CARDIAC VALVE DISEASE
     Dosage: UNK
     Route: 065
  10. SPIRAMYCIN [Concomitant]
     Active Substance: SPIRAMYCIN
     Indication: COVID-19
     Dosage: UNK
     Route: 065

REACTIONS (12)
  - Condition aggravated [Fatal]
  - Epistaxis [Recovered/Resolved]
  - Drug interaction [Recovered/Resolved]
  - Pulmonary embolism [Recovering/Resolving]
  - Drug hypersensitivity [Unknown]
  - Overdose [Recovering/Resolving]
  - Drug half-life increased [Recovered/Resolved]
  - Labelled drug-drug interaction medication error [Recovering/Resolving]
  - International normalised ratio increased [Unknown]
  - Septic shock [Fatal]
  - Pneumonia [Fatal]
  - Off label use [Recovering/Resolving]
